FAERS Safety Report 7656744-1 (Version None)
Quarter: 2011Q3

REPORT INFORMATION
  Report Type: 
  Country: None (occurrence: None)
  Receive Date: 20110804
  Receipt Date: 20110801
  Transmission Date: 20111222
  Serious: Yes (Hospitalization, Other)
  Sender: FDA-Public Use
  Company Number: RU-PFIZER INC-2011167861

PATIENT
  Age: 60 Year
  Sex: Male

DRUGS (7)
  1. ATORVASTATIN CALCIUM [Suspect]
     Indication: CORONARY ARTERY DISEASE
     Dosage: 20 MG PER DAY, NO REGULARLY
     Route: 048
     Dates: start: 20080101, end: 20110713
  2. PRESTARIUM [Concomitant]
     Indication: CORONARY ARTERY DISEASE
     Dosage: 2.5 MG, 1X/DAY
     Route: 048
     Dates: start: 20080101
  3. GLIBOMET [Concomitant]
     Indication: DIABETES MELLITUS
     Dosage: 1 TAB. 3X/DAY
     Route: 048
     Dates: start: 20090101
  4. CARDIOMAGNYL [Concomitant]
     Indication: CORONARY ARTERY DISEASE
     Dosage: 75 MG, 1X/DAY
     Route: 048
     Dates: start: 20080101
  5. BISOPROLOL FUMARATE [Concomitant]
     Indication: CORONARY ARTERY DISEASE
     Dosage: 5 MG, 1X/DAY
     Route: 048
     Dates: start: 20080101
  6. ATORVASTATIN CALCIUM [Suspect]
     Indication: HYPERTENSION
  7. ATORVASTATIN CALCIUM [Suspect]
     Indication: HYPERCHOLESTEROLAEMIA

REACTIONS (8)
  - ALANINE AMINOTRANSFERASE INCREASED [None]
  - ASTHENIA [None]
  - JAUNDICE [None]
  - ASPARTATE AMINOTRANSFERASE INCREASED [None]
  - INFARCTION [None]
  - CORONARY ARTERY BYPASS [None]
  - INSOMNIA [None]
  - CONDITION AGGRAVATED [None]
